FAERS Safety Report 9043779 (Version 1)
Quarter: 2013Q1

REPORT INFORMATION
  Report Type: Report from Study
  Country: US (occurrence: US)
  Receive Date: 20130129
  Receipt Date: 20130129
  Transmission Date: 20140127
  Serious: No
  Sender: FDA-Public Use
  Company Number: US-ABBOTT-12P-163-0913437-00

PATIENT
  Age: 46 Year
  Sex: Female

DRUGS (4)
  1. HUMIRA 40 MG/0.8 ML PEN [Suspect]
     Indication: PSORIASIS
     Dates: start: 20120202, end: 20120202
  2. HUMIRA 40 MG/0.8 ML PEN [Suspect]
     Dates: start: 20120209
  3. HUMIRA 40 MG/0.8 ML PEN [Suspect]
     Dates: start: 20120309
  4. FOLIC ACID [Concomitant]
     Indication: PRODUCT USED FOR UNKNOWN INDICATION
     Dosage: 2 TABS A DAY

REACTIONS (3)
  - Pain [Recovering/Resolving]
  - Mobility decreased [Recovering/Resolving]
  - Myalgia [Recovering/Resolving]
